FAERS Safety Report 7654978-3 (Version None)
Quarter: 2011Q3

REPORT INFORMATION
  Report Type: 
  Country: None (occurrence: None)
  Receive Date: 20110804
  Receipt Date: 20110722
  Transmission Date: 20111222
  Serious: Yes (Hospitalization)
  Sender: FDA-Public Use
  Company Number: DE-ELI_LILLY_AND_COMPANY-DE201107005924

PATIENT
  Sex: Male

DRUGS (3)
  1. CORTISONE ACETATE [Concomitant]
  2. ERGOCALCIFEROL [Concomitant]
     Dosage: 1000 MG, QD
  3. FORTEO [Suspect]
     Indication: OSTEOPOROSIS
     Dosage: UNK, QD
     Route: 058
     Dates: start: 20101011

REACTIONS (3)
  - DYSPHAGIA [None]
  - WEIGHT DECREASED [None]
  - STIFF-MAN SYNDROME [None]
